FAERS Safety Report 6444023-X (Version None)
Quarter: 2009Q4

REPORT INFORMATION
  Report Type: 
  Country: None (occurrence: None)
  Receive Date: 20091116
  Receipt Date: 20091116
  Transmission Date: 20100525
  Serious: Yes (Other)
  Sender: FDA-Public Use
  Company Number: None

PATIENT
  Age: 44 Year
  Sex: Female
  Weight: 114.76 kg

DRUGS (1)
  1. MIRENA [Suspect]
     Indication: MENSTRUAL CYCLE MANAGEMENT
     Dosage: 52 MG/UNIT VARIES, UP TO 5 YEARS INTRA-UTERINE DEVICE EXTENDED DURATION
     Route: 015

REACTIONS (1)
  - DEEP VEIN THROMBOSIS [None]
